FAERS Safety Report 6408628-4 (Version None)
Quarter: 2009Q4

REPORT INFORMATION
  Report Type: 
  Country: None (occurrence: None)
  Receive Date: 20091021
  Receipt Date: 20091009
  Transmission Date: 20100525
  Serious: Yes (Death)
  Sender: FDA-Public Use
  Company Number: US-PFIZER INC-2009261094

PATIENT
  Age: 26 Year
  Sex: Male

DRUGS (4)
  1. ALPRAZOLAM [Suspect]
  2. FLUOXETINE [Suspect]
  3. AMPHETAMINE SULFATE [Suspect]
  4. OXYCODONE [Suspect]

REACTIONS (1)
  - DRUG TOXICITY [None]
